FAERS Safety Report 8269859 (Version 6)
Quarter: 2012Q4

REPORT INFORMATION
  Report Type: Report from Study
  Country: US (occurrence: US)
  Receive Date: 20111201
  Receipt Date: 20120905
  Transmission Date: 20130627
  Serious: Yes (Death, Hospitalization)
  Sender: FDA-Public Use
  Company Number: US-BRISTOL-MYERS SQUIBB COMPANY-16257479

PATIENT
  Age: 64 Year
  Sex: Male
  Weight: 69 kg

DRUGS (9)
  1. CETUXIMAB [Suspect]
     Indication: COLORECTAL CANCER
     Dosage: Vial,ROA:IV,Every 2 weeks
     Route: 065
     Dates: start: 20110920, end: 20111025
  2. IRINOTECAN [Suspect]
     Indication: COLORECTAL CANCER
     Dosage: ROA:IV,Every 2 weeks
     Route: 065
     Dates: start: 20110920, end: 20111025
  3. RAMUCIRUMAB [Suspect]
     Indication: COLORECTAL CANCER
     Dosage: ROA:IV,Every 2 weeks
     Route: 065
     Dates: start: 20110920, end: 20111025
  4. LEVOTHYROXINE [Concomitant]
  5. MEGESTROL ACETATE [Concomitant]
  6. MAGNESIUM HYDROXIDE [Concomitant]
  7. POTASSIUM [Concomitant]
  8. VITAMIN D [Concomitant]
  9. ZOFRAN [Concomitant]

REACTIONS (5)
  - Large intestine perforation [Fatal]
  - Hepatic failure [Unknown]
  - Ascites [Unknown]
  - Dehydration [Unknown]
  - Decreased appetite [Unknown]
